FAERS Safety Report 5515375-X (Version None)
Quarter: 2007Q4

REPORT INFORMATION
  Report Type: 
  Country: None (occurrence: None)
  Receive Date: 20071109
  Receipt Date: 20071030
  Transmission Date: 20080405
  Serious: Yes (Death, Hospitalization)
  Sender: FDA-Public Use
  Company Number: RENA-12314

PATIENT
  Age: 83 Year
  Sex: Male

DRUGS (1)
  1. RENAGEL [Suspect]
     Indication: HYPERPHOSPHATAEMIA
     Dosage: 0.8 G TID PO
     Route: 048

REACTIONS (6)
  - ARTERIOVENOUS FISTULA SITE INFECTION [None]
  - BLOOD PARATHYROID HORMONE INCREASED [None]
  - INTRASPINAL ABSCESS [None]
  - SEPSIS [None]
  - STAPHYLOCOCCAL INFECTION [None]
  - SWELLING FACE [None]
